FAERS Safety Report 8568636-4 (Version None)
Quarter: 2012Q3

REPORT INFORMATION
  Report Type: 
  Country: None (occurrence: None)
  Receive Date: 20120803
  Receipt Date: 20120517
  Transmission Date: 20120928
  Serious: No
  Sender: FDA-Public Use
  Company Number: US-ABBOTT-12P-163-0936533-00

PATIENT
  Sex: Male
  Weight: 89.438 kg

DRUGS (9)
  1. BLOOD PRESSURE MEDICATION [Concomitant]
     Indication: BLOOD PRESSURE
     Route: 048
  2. NIASPAN [Suspect]
     Indication: BLOOD TRIGLYCERIDES INCREASED
     Dosage: AT BEDTIME
     Route: 048
  3. NIASPAN [Suspect]
     Indication: BLOOD TRIGLYCERIDES INCREASED
     Dosage: AT BEDTIME
     Route: 048
  4. NIASPAN [Suspect]
     Dosage: 1000 MG 2 PO IN MORNING
     Route: 048
  5. NASAL SPRAY [Concomitant]
     Indication: HYPERSENSITIVITY
  6. ASPIRIN [Concomitant]
     Indication: PRODUCT USED FOR UNKNOWN INDICATION
     Dosage: PRIOR TO DOSE OF NIASPAN
     Route: 048
  7. NIASPAN [Suspect]
     Dosage: 1500MG IN MORNING
     Route: 048
  8. NIASPAN [Suspect]
     Indication: HIGH DENSITY LIPOPROTEIN INCREASED
     Dosage: 1000 MG PO IN MORNING
     Route: 048
  9. NIASPAN [Suspect]
     Indication: HIGH DENSITY LIPOPROTEIN INCREASED
     Dosage: IN THE MORNING
     Route: 048

REACTIONS (4)
  - ERYTHEMA [None]
  - MIDDLE INSOMNIA [None]
  - FLUSHING [None]
  - FEELING HOT [None]
